FAERS Safety Report 19427737 (Version 1)
Quarter: 2021Q2

REPORT INFORMATION
  Report Type: Spontaneous
  Country: US (occurrence: US)
  Receive Date: 20210616
  Receipt Date: 20210616
  Transmission Date: 20210717
  Serious: Yes (Disabling)
  Sender: FDA-Public Use
  Company Number: None

PATIENT
  Age: 67 Year
  Sex: Female

DRUGS (9)
  1. LORAZEPAM. [Concomitant]
     Active Substance: LORAZEPAM
  2. VIT  D [Concomitant]
     Active Substance: VITAMIN D NOS
  3. PROLIA [Suspect]
     Active Substance: DENOSUMAB
     Indication: BONE LOSS
     Dosage: OTHER FREQUENCY:TWICE A YEAR;?
     Route: 030
  4. LEVOTHYROXINE. [Concomitant]
     Active Substance: LEVOTHYROXINE
  5. NORVASC [Concomitant]
     Active Substance: AMLODIPINE BESYLATE
  6. CALCIUM [Concomitant]
     Active Substance: CALCIUM
  7. HCT [Concomitant]
     Active Substance: HYDROCHLOROTHIAZIDE
  8. O9MEGA?3^S [Concomitant]
  9. MULTIPLE VITAMIN [Concomitant]
     Active Substance: VITAMINS

REACTIONS (3)
  - Arthralgia [None]
  - Loss of personal independence in daily activities [None]
  - Pain in extremity [None]

NARRATIVE: CASE EVENT DATE: 20210204
